FAERS Safety Report 7481605-0 (Version None)
Quarter: 2011Q2

REPORT INFORMATION
  Report Type: 
  Country: None (occurrence: None)
  Receive Date: 20110516
  Receipt Date: 20110506
  Transmission Date: 20111010
  Serious: Yes (Death, Hospitalization, Other)
  Sender: FDA-Public Use
  Company Number: US-ROCHE-774707

PATIENT
  Age: 57 Year
  Sex: Female
  Weight: 58.1 kg

DRUGS (7)
  1. ACTEMRA [Suspect]
     Dosage: OTHER: INFUSION
     Route: 042
     Dates: start: 20110118, end: 20110118
  2. ACTEMRA [Suspect]
     Route: 042
     Dates: start: 20110317, end: 20110317
  3. ACTEMRA [Suspect]
     Route: 042
     Dates: start: 20110413, end: 20110413
  4. ARAVA [Suspect]
     Route: 048
  5. ACTEMRA [Suspect]
     Route: 042
     Dates: start: 20110215, end: 20110215
  6. REMICADE [Concomitant]
  7. ACTEMRA [Suspect]
     Dosage: STARTING DOSE
     Route: 042

REACTIONS (10)
  - GASTROINTESTINAL DISORDER [None]
  - CARDIAC ARREST [None]
  - ACUTE RESPIRATORY FAILURE [None]
  - BACTERIAL SEPSIS [None]
  - LEUKOCYTOSIS [None]
  - GALLBLADDER DISORDER [None]
  - PULMONARY OEDEMA [None]
  - DISSEMINATED INTRAVASCULAR COAGULATION [None]
  - HYPOTENSION [None]
  - RENAL FAILURE ACUTE [None]
